FAERS Safety Report 4534778-3 (Version None)
Quarter: 2004Q4

REPORT INFORMATION
  Report Type: 
  Country: None (occurrence: None)
  Receive Date: 20041222
  Receipt Date: 20040227
  Transmission Date: 20050328
  Serious: No
  Sender: FDA-Public Use
  Company Number: US-BRISTOL-MYERS SQUIBB COMPANY-12520532

PATIENT
  Age: 71 Year
  Sex: Male
  Weight: 82 kg

DRUGS (4)
  1. PRAVACHOL [Suspect]
     Indication: CORONARY ARTERY DISEASE
     Dosage: THERAPY INTERRUPTED ON 22-FEB-2004
     Route: 048
     Dates: start: 20031101
  2. PLAVIX [Concomitant]
  3. ASPIRIN [Concomitant]
  4. HYDROCHLOROTHIAZIDE [Concomitant]

REACTIONS (1)
  - TENOSYNOVITIS [None]
